FAERS Safety Report 8470113-6 (Version None)
Quarter: 2012Q2

REPORT INFORMATION
  Report Type: 
  Country: None (occurrence: None)
  Receive Date: 20120627
  Receipt Date: 20081027
  Transmission Date: 20120825
  Serious: No
  Sender: FDA-Public Use
  Company Number: 2008BI028759

PATIENT
  Age: 47 Year
  Sex: Female

DRUGS (1)
  1. TYSABRI [Suspect]
     Indication: MULTIPLE SCLEROSIS
     Route: 042
     Dates: start: 20061005, end: 20080331

REACTIONS (5)
  - BALANCE DISORDER [None]
  - DRUG SPECIFIC ANTIBODY PRESENT [None]
  - NEUROPATHY PERIPHERAL [None]
  - FATIGUE [None]
  - TREMOR [None]
